FAERS Safety Report 5235098-4 (Version None)
Quarter: 2007Q1

REPORT INFORMATION
  Report Type: 
  Country: None (occurrence: None)
  Receive Date: 20070130
  Receipt Date: 20070115
  Transmission Date: 20070707
  Serious: Yes (Other)
  Sender: FDA-Public Use
  Company Number: 200610428BBE

PATIENT
  Age: 78 Year
  Sex: Female
  Weight: 69 kg

DRUGS (3)
  1. GAMUNEX [Suspect]
     Indication: IDIOPATHIC THROMBOCYTOPENIC PURPURA
     Dosage: 70 GM; QD; IV
     Route: 042
     Dates: start: 20061215, end: 20061218
  2. GAMUNEX [Suspect]
     Indication: METASTATIC NEOPLASM
     Dosage: 70 GM; QD; IV
     Route: 042
     Dates: start: 20061215, end: 20061218
  3. PLATELETS [Concomitant]

REACTIONS (6)
  - BAND NEUTROPHIL COUNT INCREASED [None]
  - HAEMOGLOBIN DECREASED [None]
  - HAEMOLYSIS [None]
  - HAEMOPTYSIS [None]
  - LEUKOCYTOSIS [None]
  - RED BLOOD CELL SPHEROCYTES PRESENT [None]
